FAERS Safety Report 6626482-2 (Version None)
Quarter: 2010Q1

REPORT INFORMATION
  Report Type: 
  Country: None (occurrence: None)
  Receive Date: 20100310
  Receipt Date: 20100301
  Transmission Date: 20100710
  Serious: Yes (Other)
  Sender: FDA-Public Use
  Company Number: US-GENENTECH-298896

PATIENT

DRUGS (5)
  1. RITUXIMAB [Suspect]
     Indication: WALDENSTROM'S MACROGLOBULINAEMIA
     Dosage: 375 MG/M2, DAY 1
     Route: 042
  2. CYCLOPHOSPHAMIDE [Suspect]
     Indication: WALDENSTROM'S MACROGLOBULINAEMIA
     Dosage: 750 MG/M2, DAY 1
     Route: 042
  3. DOXORUBICIN [Suspect]
     Indication: WALDENSTROM'S MACROGLOBULINAEMIA
     Dosage: 50 MG/M2, DAY 1
     Route: 042
  4. VINCRISTINE [Suspect]
     Indication: WALDENSTROM'S MACROGLOBULINAEMIA
     Dosage: 1.4 MG/M2, DAY 1
     Route: 042
  5. PREDNISONE [Suspect]
     Indication: WALDENSTROM'S MACROGLOBULINAEMIA
     Dosage: 100 MG, DAYS 1-5
     Route: 048

REACTIONS (3)
  - BLOOD IMMUNOGLOBULIN M INCREASED [None]
  - CYSTITIS HAEMORRHAGIC [None]
  - FEBRILE NEUTROPENIA [None]
